FAERS Safety Report 25572131 (Version 1)
Quarter: 2025Q3

REPORT INFORMATION
  Report Type: Spontaneous
  Country: US (occurrence: US)
  Receive Date: 20250717
  Receipt Date: 20250717
  Transmission Date: 20251020
  Serious: Yes (Death, Other)
  Sender: SANOFI AVENTIS
  Company Number: US-DialogSolutions-SAAVPROD-PI800205-C1

PATIENT
  Age: 44 Year
  Sex: Female

DRUGS (3)
  1. DOCETAXEL [Suspect]
     Active Substance: DOCETAXEL
     Indication: Breast angiosarcoma
  2. GEMCITABINE [Suspect]
     Active Substance: GEMCITABINE
     Indication: Breast angiosarcoma
  3. DOXORUBICIN [Suspect]
     Active Substance: DOXORUBICIN
     Indication: Breast angiosarcoma

REACTIONS (2)
  - Breast angiosarcoma [Fatal]
  - Metastases to liver [Fatal]
